FAERS Safety Report 15229386 (Version 2)
Quarter: 2018Q3

REPORT INFORMATION
  Report Type: Spontaneous
  Country: US (occurrence: US)
  Receive Date: 20180801
  Receipt Date: 20180817
  Transmission Date: 20181010
  Serious: Yes (Hospitalization, Other)
  Sender: FDA-Public Use
  Company Number: US-009507513-1807USA010764

PATIENT
  Age: 30 Year
  Sex: Female
  Weight: 80 kg

DRUGS (1)
  1. BRIDION [Suspect]
     Active Substance: SUGAMMADEX
     Indication: NEUROMUSCULAR BLOCKADE REVERSAL
     Dosage: 200 MG, ONCE
     Route: 042

REACTIONS (7)
  - Asthenia [Recovered/Resolved]
  - Wheezing [Recovered/Resolved]
  - Dyspnoea [Recovered/Resolved]
  - Anaphylactic reaction [Recovered/Resolved]
  - Angioedema [Recovered/Resolved]
  - Bronchospasm [Recovered/Resolved]
  - Hypotension [Recovered/Resolved]
